FAERS Safety Report 5117943-6 (Version None)
Quarter: 2006Q3

REPORT INFORMATION
  Report Type: 
  Country: None (occurrence: None)
  Receive Date: 20060926
  Receipt Date: 20060914
  Transmission Date: 20061208
  Serious: No
  Sender: FDA-Public Use
  Company Number: E2090-00092-SPO-JP

PATIENT
  Age: 15 Year
  Sex: Female

DRUGS (4)
  1. ZONISAMIDE [Suspect]
     Indication: EPILEPSY
     Dosage: ORAL
     Route: 048
  2. CARBAMAZEPINE [Concomitant]
  3. VALPROATE SODIUM [Concomitant]
  4. CLOBAZAM [Concomitant]

REACTIONS (5)
  - ANOREXIA [None]
  - APLASIA PURE RED CELL [None]
  - HEPATIC FUNCTION ABNORMAL [None]
  - PALLOR [None]
  - WEIGHT DECREASED [None]
